FAERS Safety Report 7789595-8 (Version None)
Quarter: 2011Q3

REPORT INFORMATION
  Report Type: 
  Country: None (occurrence: None)
  Receive Date: 20110930
  Receipt Date: 20110929
  Transmission Date: 20111222
  Serious: Yes (Other)
  Sender: FDA-Public Use
  Company Number: IN-PFIZER INC-2011225353

PATIENT
  Age: 62 Year
  Sex: Female

DRUGS (3)
  1. PARACETAMOL [Concomitant]
     Indication: PAIN
     Dosage: 650 MG, 2X/DAY
     Route: 048
  2. SHELCAL [Concomitant]
     Dosage: 500 MG, 1X/DAY
     Route: 048
  3. DEPO-MEDROL [Suspect]
     Dosage: UNK
     Dates: start: 20110920, end: 20110920

REACTIONS (3)
  - ARTHRALGIA [None]
  - ABASIA [None]
  - PAIN IN EXTREMITY [None]
